FAERS Safety Report 24802108 (Version 1)
Quarter: 2025Q1

REPORT INFORMATION
  Report Type: Spontaneous
  Country: CA (occurrence: CA)
  Receive Date: 20250103
  Receipt Date: 20250103
  Transmission Date: 20250409
  Serious: Yes (Life-Threatening, Hospitalization, Congenital Anomaly, Other)
  Sender: TEVA
  Company Number: CA-TEVA-VS-3282463

PATIENT
  Age: 75 Year
  Sex: Male
  Weight: 74 kg

DRUGS (1)
  1. PACLITAXEL [Suspect]
     Active Substance: PACLITAXEL
     Indication: Product used for unknown indication
     Route: 042

REACTIONS (6)
  - Hypotension [Recovering/Resolving]
  - Haemoglobin decreased [Recovering/Resolving]
  - Loss of consciousness [Recovering/Resolving]
  - Resuscitation [Recovering/Resolving]
  - Oxygen therapy [Recovering/Resolving]
  - Malaise [Recovering/Resolving]
